FAERS Safety Report 9707470 (Version 2)
Quarter: 2013Q4

REPORT INFORMATION
  Report Type: Spontaneous
  Country: US (occurrence: US)
  Receive Date: 20131125
  Receipt Date: 20131213
  Transmission Date: 20140711
  Serious: No
  Sender: FDA-Public Use
  Company Number: US-009507513-1311USA010411

PATIENT
  Sex: Female
  Weight: 59.86 kg

DRUGS (4)
  1. OXYTROL FOR WOMEN [Suspect]
     Indication: POLLAKIURIA
     Dosage: 1 DF, ONCE
     Route: 062
     Dates: start: 20131105, end: 20131107
  2. ATIVAN [Concomitant]
     Indication: NERVOUSNESS
     Dosage: UNK, UNKNOWN
  3. LEXAPRO [Concomitant]
     Indication: NERVOUSNESS
     Dosage: UNK, UNKNOWN
  4. TRAZODONE HYDROCHLORIDE [Concomitant]
     Indication: PRODUCT USED FOR UNKNOWN INDICATION
     Dosage: UNK, UNKNOWN

REACTIONS (1)
  - Nocturia [Recovered/Resolved]
